FAERS Safety Report 7437037-4 (Version None)
Quarter: 2011Q2

REPORT INFORMATION
  Report Type: 
  Country: None (occurrence: None)
  Receive Date: 20110421
  Receipt Date: 20110421
  Transmission Date: 20111010
  Serious: Yes (Life-Threatening)
  Sender: FDA-Public Use
  Company Number: None

PATIENT
  Age: 54 Year
  Sex: Male
  Weight: 80.5 kg

DRUGS (1)
  1. SODIUM FERRIC GLUCONATE [Suspect]
     Indication: IRON DEFICIENCY ANAEMIA
     Dosage: 500 MG ONCE IV
     Route: 042
     Dates: start: 20110329, end: 20110329

REACTIONS (1)
  - ANAPHYLACTIC REACTION [None]
